FAERS Safety Report 5822736-8 (Version None)
Quarter: 2008Q3

REPORT INFORMATION
  Report Type: 
  Country: None (occurrence: None)
  Receive Date: 20080725
  Receipt Date: 20070921
  Transmission Date: 20090109
  Serious: No
  Sender: FDA-Public Use
  Company Number: US-AMGEN-KDL235536

PATIENT
  Sex: Female

DRUGS (5)
  1. PROCRIT [Suspect]
     Indication: RENAL FAILURE CHRONIC
  2. AVALIDE [Suspect]
  3. COUMADIN [Concomitant]
  4. LASIX [Concomitant]
  5. COREG [Concomitant]

REACTIONS (2)
  - INCREASED TENDENCY TO BRUISE [None]
  - THERAPEUTIC RESPONSE DECREASED [None]
